FAERS Safety Report 18051404 (Version 1)
Quarter: 2020Q3

REPORT INFORMATION
  Report Type: Spontaneous
  Country: DE (occurrence: DE)
  Receive Date: 20200721
  Receipt Date: 20200721
  Transmission Date: 20201103
  Serious: Yes (Hospitalization)
  Sender: FDA-Public Use
  Company Number: NVSC2020DE201875

PATIENT
  Sex: Male

DRUGS (11)
  1. DOXORUBICIN [Suspect]
     Active Substance: DOXORUBICIN
     Indication: FOETAL EXPOSURE DURING PREGNANCY
     Dosage: UNK (MATERNAL DOSE: 50 MG/M2 OVER 30 MIN DAY2
     Route: 064
  2. ETOPOSIDE. [Suspect]
     Active Substance: ETOPOSIDE
     Indication: FOETAL EXPOSURE DURING PREGNANCY
     Dosage: UNK (100 MG/M2 OVR 1 H DAY 2?4)
     Route: 064
  3. RITUXIMAB. [Suspect]
     Active Substance: RITUXIMAB
     Indication: FOETAL EXPOSURE DURING PREGNANCY
     Dosage: UNK (MATERNAL DOSE: 375 MG/M2 (OVER 3 HRS ON DAY 1)
     Route: 064
  4. CYCLOPHOSPHAMIDE. [Suspect]
     Active Substance: CYCLOPHOSPHAMIDE
     Indication: FOETAL EXPOSURE DURING PREGNANCY
     Dosage: UNK (MATERNAL DOSE 750 MG/M2 OVER 1H DAY 2)
     Route: 064
  5. VINCRISTINE [Suspect]
     Active Substance: VINCRISTINE
     Indication: FOETAL EXPOSURE DURING PREGNANCY
     Dosage: UNK (MATERNAL DOSE 2 MG ON DAY 2)
     Route: 064
  6. FILGRASTIM [Suspect]
     Active Substance: FILGRASTIM
     Indication: FOETAL EXPOSURE DURING PREGNANCY
     Dosage: UNK (MATERNAL DOSE: 10 UG/KG DAY 6?11)
     Route: 064
  7. CYTARABINE. [Suspect]
     Active Substance: CYTARABINE
     Indication: FOETAL EXPOSURE DURING PREGNANCY
     Dosage: UNK (40 MG DAY 2,6 PRENATAL PHS)
     Route: 064
  8. CYTARABINE. [Suspect]
     Active Substance: CYTARABINE
     Dosage: UNK (MATERNAL DOSE: 150 MG/M2 OVER 1 HR EVRY 12 H)
     Route: 064
  9. PREDNISOLONE. [Suspect]
     Active Substance: PREDNISOLONE
     Indication: FOETAL EXPOSURE DURING PREGNANCY
     Dosage: UNK (180 MG ON DAYS 2?5)
     Route: 064
  10. MESNA. [Suspect]
     Active Substance: MESNA
     Indication: FOETAL EXPOSURE DURING PREGNANCY
     Dosage: UNK (MATERNAL DOSE: 200 MG/M2 AT 0, 4, 8 HRS)
     Route: 064
  11. DEXAMETHASONE. [Suspect]
     Active Substance: DEXAMETHASONE
     Indication: FOETAL EXPOSURE DURING PREGNANCY
     Dosage: UNK ( MATERNAL DOSE:4MG ON DAYS 2, 6)
     Route: 064

REACTIONS (7)
  - Low birth weight baby [Unknown]
  - Bacterial infection [Unknown]
  - Foetal exposure during pregnancy [Unknown]
  - Small for dates baby [Unknown]
  - Foetal growth restriction [Unknown]
  - Hypogammaglobulinaemia [Unknown]
  - B-lymphocyte count decreased [Not Recovered/Not Resolved]
